FAERS Safety Report 5246043-X (Version None)
Quarter: 2007Q1

REPORT INFORMATION
  Report Type: 
  Country: None (occurrence: None)
  Receive Date: 20061201
  Receipt Date: 20060724
  Transmission Date: 20070707
  Serious: No
  Sender: FDA-Public Use
  Company Number: 2006PV018146

PATIENT
  Age: 79 Year
  Sex: Male
  Weight: 103.8737 kg

DRUGS (11)
  1. BYETTA [Suspect]
     Indication: DIABETES MELLITUS INSULIN-DEPENDENT
     Dosage: 10 MCG;BID;SC, 5 MCG;BID;SC
     Route: 058
     Dates: start: 20060502, end: 20060620
  2. BYETTA [Suspect]
     Indication: DIABETES MELLITUS INSULIN-DEPENDENT
     Dosage: 10 MCG;BID;SC, 5 MCG;BID;SC
     Route: 058
     Dates: start: 20060621
  3. LANTUS [Concomitant]
  4. INSULIN PEN [Concomitant]
  5. ASPIRIN [Concomitant]
  6. COREG [Concomitant]
  7. LASIX [Concomitant]
  8. POTASSIUM ACETATE [Concomitant]
  9. NEXIUM [Concomitant]
  10. MIRAPEX ^PHARMACIA + UPJOHN^ [Concomitant]
  11. TRICOR [Concomitant]

REACTIONS (5)
  - BLOOD GLUCOSE DECREASED [None]
  - BLOOD GLUCOSE INCREASED [None]
  - CONTUSION [None]
  - DRUG EFFECT DECREASED [None]
  - TREMOR [None]
